FAERS Safety Report 7249997-5 (Version None)
Quarter: 2011Q1

REPORT INFORMATION
  Report Type: 
  Country: None (occurrence: None)
  Receive Date: 20110121
  Receipt Date: 20110121
  Transmission Date: 20110831
  Serious: Yes (Hospitalization)
  Sender: FDA-Public Use
  Company Number: None

PATIENT
  Sex: Female
  Weight: 69.3 kg

DRUGS (2)
  1. REVLIMID [Suspect]
     Dosage: REVLEMID 50 MG QD PO
     Route: 048
  2. AZACITIDINE [Suspect]
     Indication: ACUTE MYELOID LEUKAEMIA
     Dosage: AZACITIDINE 75 MG/M2 QD IV
     Route: 042

REACTIONS (1)
  - URINARY TRACT INFECTION [None]
